FAERS Safety Report 7437467-0 (Version None)
Quarter: 2011Q2

REPORT INFORMATION
  Report Type: 
  Country: None (occurrence: None)
  Receive Date: 20110426
  Receipt Date: 20110413
  Transmission Date: 20111010
  Serious: Yes (Hospitalization)
  Sender: FDA-Public Use
  Company Number: PHBS2007JP15071

PATIENT
  Sex: Male
  Weight: 70 kg

DRUGS (11)
  1. MEXITIL [Suspect]
     Indication: NERVE INJURY
     Dosage: 300 MG, DAILY
     Route: 048
     Dates: start: 20070720, end: 20070827
  2. PL GRAN. [Suspect]
     Indication: NASOPHARYNGITIS
     Dosage: 3 MG
     Route: 048
     Dates: start: 20070822, end: 20070824
  3. ZANTAC [Concomitant]
     Dosage: UNK
     Dates: start: 20070904, end: 20070912
  4. LUDIOMIL [Suspect]
     Indication: NERVE INJURY
     Dosage: 10 MG, DAILY
     Route: 048
     Dates: start: 20070815, end: 20070827
  5. DIOVAN [Suspect]
     Indication: HYPERTENSION
     Dosage: 20 MG, DAILY
     Route: 048
     Dates: start: 20070722, end: 20070827
  6. PL GRAN. [Suspect]
     Dosage: 3 G/DAY
     Route: 048
     Dates: start: 20070828, end: 20070829
  7. TEGRETOL [Suspect]
     Indication: NERVE INJURY
     Dosage: 200 MG, UNK
     Route: 048
     Dates: start: 20070807, end: 20070827
  8. MELBIN [Suspect]
     Indication: DIABETES MELLITUS
     Dosage: 500 MG, DAILY
     Route: 048
     Dates: start: 20070810, end: 20070827
  9. LIPITOR [Suspect]
     Indication: HYPERLIPIDAEMIA
     Dosage: 10 MG, DAILY
     Route: 048
     Dates: start: 20070826, end: 20070827
  10. HUMACART-N [Concomitant]
     Indication: DIABETES MELLITUS
     Dosage: UNK
     Dates: start: 20070710
  11. HUMALOG [Concomitant]
     Indication: DIABETES MELLITUS
     Dosage: UNK
     Dates: start: 20070710

REACTIONS (19)
  - SKIN EXFOLIATION [None]
  - DRUG RASH WITH EOSINOPHILIA AND SYSTEMIC SYMPTOMS [None]
  - URTICARIA [None]
  - HUMAN HERPES VIRUS 6 SEROLOGY POSITIVE [None]
  - ERYTHEMA [None]
  - OEDEMA [None]
  - WHITE BLOOD CELL COUNT INCREASED [None]
  - CYTOMEGALOVIRUS TEST POSITIVE [None]
  - RASH GENERALISED [None]
  - BLISTER [None]
  - BLOOD LACTATE DEHYDROGENASE INCREASED [None]
  - LYMPHOCYTE STIMULATION TEST POSITIVE [None]
  - PIGMENTATION DISORDER [None]
  - GAMMA-GLUTAMYLTRANSFERASE INCREASED [None]
  - BLOOD GLUCOSE INCREASED [None]
  - PYREXIA [None]
  - C-REACTIVE PROTEIN INCREASED [None]
  - PRURITUS [None]
  - BLOOD ALKALINE PHOSPHATASE INCREASED [None]
